FAERS Safety Report 11762113 (Version 1)
Quarter: 2015Q4

REPORT INFORMATION
  Report Type: Spontaneous
  Country: US (occurrence: US)
  Receive Date: 20151120
  Receipt Date: 20151120
  Transmission Date: 20160304
  Serious: No
  Sender: FDA-Public Use
  Company Number: US-ELI_LILLY_AND_COMPANY-US201210010064

PATIENT
  Sex: Female

DRUGS (2)
  1. FORTEO [Suspect]
     Active Substance: TERIPARATIDE
     Indication: OSTEOPOROSIS
     Dosage: 20 UG, QD
     Dates: start: 20120824
  2. FORTEO [Suspect]
     Active Substance: TERIPARATIDE
     Dosage: 20 UG, QD
     Dates: end: 20121031

REACTIONS (7)
  - Coordination abnormal [Recovering/Resolving]
  - Faeces hard [Unknown]
  - Constipation [Recovered/Resolved]
  - Dizziness [Unknown]
  - Hypophagia [Unknown]
  - Fear of falling [Unknown]
  - Flatulence [Unknown]

NARRATIVE: CASE EVENT DATE: 2012
